FAERS Safety Report 8184132-0 (Version None)
Quarter: 2012Q1

REPORT INFORMATION
  Report Type: 
  Country: None (occurrence: None)
  Receive Date: 20120305
  Receipt Date: 20120227
  Transmission Date: 20120608
  Serious: Yes (Other)
  Sender: FDA-Public Use
  Company Number: BE-PFIZER INC-2012019998

PATIENT
  Age: 61 Year
  Sex: Male

DRUGS (11)
  1. MEDROL [Suspect]
     Dosage: 32 MG, 1X/DAY
     Route: 048
     Dates: start: 19960620, end: 19960719
  2. MEDROL [Suspect]
     Dosage: 4 MG, EVERY OTHER DAY
     Route: 048
     Dates: start: 19970630, end: 19970831
  3. MEDROL [Suspect]
     Dosage: 4 MG, EVERY 4 DAYS
     Route: 048
     Dates: start: 19971101, end: 19980403
  4. MEDROL [Suspect]
     Dosage: 24 MG, 1X/DAY
     Route: 048
     Dates: start: 19960720, end: 19960831
  5. MEDROL [Suspect]
     Dosage: 4 MG, EVERY 3 DAYS
     Route: 048
     Dates: start: 19970901, end: 19971030
  6. MEDROL [Suspect]
     Indication: RETROPERITONEAL FIBROSIS
     Dosage: 32 MG, 2X/DAY
     Route: 048
     Dates: start: 19960531, end: 19960619
  7. MEDROL [Suspect]
     Dosage: 12 MG, 1X/DAY
     Route: 048
     Dates: start: 19961001, end: 19961030
  8. MEDROL [Suspect]
     Dosage: 16 MG, 1X/DAY
     Route: 048
     Dates: start: 19960901, end: 19960930
  9. MEDROL [Suspect]
     Dosage: 6 MG, 1X/DAY
     Route: 048
     Dates: start: 19970101, end: 19970228
  10. MEDROL [Suspect]
     Dosage: 8 MG, 1X/DAY
     Route: 048
     Dates: start: 19961101, end: 19961231
  11. MEDROL [Suspect]
     Dosage: 4 MG, 1X/DAY
     Dates: start: 19970301, end: 19970629

REACTIONS (14)
  - DIABETES MELLITUS [None]
  - GASTROINTESTINAL ULCER [None]
  - SLEEP DISORDER [None]
  - MUSCLE DISORDER [None]
  - NEPHRECTOMY [None]
  - DRY MOUTH [None]
  - RESPIRATORY DISORDER [None]
  - PANIC REACTION [None]
  - TINNITUS [None]
  - DISTURBANCE IN ATTENTION [None]
  - VISUAL ACUITY REDUCED [None]
  - BONE PAIN [None]
  - BACK DISORDER [None]
  - DEPRESSION [None]
